FAERS Safety Report 23843694 (Version 5)
Quarter: 2024Q3

REPORT INFORMATION
  Report Type: Spontaneous
  Country: US (occurrence: US)
  Receive Date: 20240510
  Receipt Date: 20240918
  Transmission Date: 20241017
  Serious: Yes (Hospitalization)
  Sender: CALLIDITAS THERAPEUTICS
  Company Number: US-Calliditas-2024CAL00683

PATIENT
  Age: 59 Year
  Sex: Female

DRUGS (1)
  1. TARPEYO [Suspect]
     Active Substance: BUDESONIDE
     Indication: IgA nephropathy
     Route: 048
     Dates: start: 20230419

REACTIONS (19)
  - Faeces soft [Unknown]
  - Nocturia [Unknown]
  - Inappropriate schedule of product administration [Unknown]
  - Insurance issue [Unknown]
  - Stress [Unknown]
  - Product dose omission issue [Unknown]
  - Abdominal discomfort [Unknown]
  - Diarrhoea [Unknown]
  - Feeling abnormal [Unknown]
  - Weight decreased [Unknown]
  - Anxiety [Unknown]
  - Flatulence [Unknown]
  - Headache [Unknown]
  - Epistaxis [Unknown]
  - Nasal crusting [Unknown]
  - Contusion [Unknown]
  - Hospitalisation [Unknown]
  - Myocardial infarction [Unknown]
  - Eye disorder [Unknown]

NARRATIVE: CASE EVENT DATE: 20240730
